FAERS Safety Report 16947683 (Version 6)
Quarter: 2023Q1

REPORT INFORMATION
  Report Type: Spontaneous
  Country: US (occurrence: US)
  Receive Date: 20191022
  Receipt Date: 20230123
  Transmission Date: 20230418
  Serious: Yes (Other)
  Sender: FDA-Public Use
  Company Number: US-PFIZER INC-2019457360

PATIENT
  Age: 68 Year
  Sex: Male

DRUGS (1)
  1. METHOTREXATE SODIUM [Suspect]
     Active Substance: METHOTREXATE SODIUM
     Indication: Drug therapy
     Dosage: UNK

REACTIONS (4)
  - Pulmonary fibrosis [Unknown]
  - Pneumonia [Unknown]
  - Off label use [Unknown]
  - Drug hypersensitivity [Unknown]
